FAERS Safety Report 25716970 (Version 1)
Quarter: 2025Q3

REPORT INFORMATION
  Report Type: Spontaneous
  Country: CN (occurrence: CN)
  Receive Date: 20250822
  Receipt Date: 20250822
  Transmission Date: 20251020
  Serious: Yes (Death, Other)
  Sender: RK PHARMA
  Company Number: CN-RK PHARMA, INC-20250800130

PATIENT

DRUGS (3)
  1. CLOMIPRAMINE HYDROCHLORIDE [Suspect]
     Active Substance: CLOMIPRAMINE HYDROCHLORIDE
     Indication: Depression
     Route: 048
     Dates: start: 202009, end: 202312
  2. WARFARIN [Concomitant]
     Active Substance: WARFARIN
     Indication: Anticoagulant therapy
     Route: 048
     Dates: start: 2020, end: 202312
  3. CLONAZEPAM [Concomitant]
     Active Substance: CLONAZEPAM
     Indication: Sleep disorder
     Route: 048
     Dates: start: 202009, end: 202312

REACTIONS (1)
  - Torsade de pointes [Fatal]

NARRATIVE: CASE EVENT DATE: 20231201
